FAERS Safety Report 11611688 (Version 1)
Quarter: 2015Q4

REPORT INFORMATION
  Report Type: Spontaneous
  Country: FR (occurrence: FR)
  Receive Date: 20151008
  Receipt Date: 20151008
  Transmission Date: 20160304
  Serious: Yes (Hospitalization)
  Sender: FDA-Public Use
  Company Number: FR-SA-2015SA152013

PATIENT
  Age: 49 Year
  Sex: Male

DRUGS (10)
  1. TRINITRINE [Concomitant]
     Active Substance: NITROGLYCERIN
     Dosage: DOSE:2 PUFF(S)
  2. BISOCE [Concomitant]
     Active Substance: BISOPROLOL
  3. AMLODIPINE/OLMESARTAN MEDOXOMIL [Concomitant]
  4. KARDEGIC [Interacting]
     Active Substance: ASPIRIN LYSINE
     Route: 048
     Dates: start: 20150710
  5. COUMADINE [Interacting]
     Active Substance: WARFARIN SODIUM
     Indication: ATRIAL FIBRILLATION
     Dosage: DOSE:EVERY OTHER DAY 4 MG DAILY AND EVERY OTHER DAY 5 MG DAILY
     Route: 048
     Dates: start: 2010, end: 20150720
  6. INDAPAMIDE. [Concomitant]
     Active Substance: INDAPAMIDE
  7. SODIUM BICARBONATE. [Concomitant]
     Active Substance: SODIUM BICARBONATE
  8. PLAVIX [Suspect]
     Active Substance: CLOPIDOGREL BISULFATE
     Route: 048
     Dates: start: 20150710, end: 20150717
  9. BRILIQUE [Interacting]
     Active Substance: TICAGRELOR
     Indication: AORTIC STENT INSERTION
     Route: 048
     Dates: start: 20150717
  10. PRAVASTATIN [Concomitant]
     Active Substance: PRAVASTATIN\PRAVASTATIN SODIUM

REACTIONS (3)
  - Anaemia [Recovered/Resolved]
  - Melaena [Recovered/Resolved]
  - Drug interaction [Unknown]

NARRATIVE: CASE EVENT DATE: 20150716
